FAERS Safety Report 25583405 (Version 6)
Quarter: 2025Q3

REPORT INFORMATION
  Report Type: Report from Study
  Country: US (occurrence: US)
  Receive Date: 20250721
  Receipt Date: 20250817
  Transmission Date: 20251020
  Serious: Yes (Hospitalization, Disabling)
  Sender: ABBVIE
  Company Number: US-ABBVIE-6375606

PATIENT
  Age: 54 Year
  Sex: Male
  Weight: 120 kg

DRUGS (11)
  1. ATOGEPANT [Suspect]
     Active Substance: ATOGEPANT
     Indication: Migraine
     Route: 048
     Dates: start: 20250708
  2. AMITRIPTYLINE [Concomitant]
     Active Substance: AMITRIPTYLINE
     Indication: Headache
     Route: 048
     Dates: start: 202208
  3. VERAPAMIL [Concomitant]
     Active Substance: VERAPAMIL HYDROCHLORIDE
     Indication: Headache
     Route: 048
     Dates: start: 2022
  4. CYMBALTA [Concomitant]
     Active Substance: DULOXETINE HYDROCHLORIDE
     Indication: Headache
     Route: 048
     Dates: start: 2022
  5. BOTOX [Concomitant]
     Active Substance: ONABOTULINUMTOXINA
     Indication: Headache
     Dosage: DOSE 200U
     Route: 058
     Dates: start: 20231127
  6. DEPAKOTE [Concomitant]
     Active Substance: DIVALPROEX SODIUM
     Indication: Headache
     Route: 048
     Dates: start: 2022
  7. MELOXICAM [Concomitant]
     Active Substance: MELOXICAM
     Indication: Headache
     Route: 048
     Dates: start: 2022
  8. UBRELVY [Concomitant]
     Active Substance: UBROGEPANT
     Indication: Headache
     Route: 048
     Dates: start: 202503
  9. ELETRIPTAN [Concomitant]
     Active Substance: ELETRIPTAN
     Indication: Headache
     Route: 048
     Dates: start: 202308
  10. CYCLOBENZAPRINE [Concomitant]
     Active Substance: CYCLOBENZAPRINE
     Indication: Back pain
     Route: 048
     Dates: start: 2022
  11. BUPIVACAINE [Concomitant]
     Active Substance: BUPIVACAINE
     Indication: Headache
     Dosage: NERVE BLOCK?DOSE 75MG/ML/DAY
     Route: 058
     Dates: start: 20240109

REACTIONS (5)
  - Suicidal ideation [Recovered/Resolved]
  - Sepsis [Recovered/Resolved]
  - Abdominal pain upper [Recovered/Resolved]
  - Diarrhoea [Recovered/Resolved]
  - Urinary tract infection [Recovered/Resolved]

NARRATIVE: CASE EVENT DATE: 20250712
